FAERS Safety Report 24624155 (Version 1)
Quarter: 2024Q4

REPORT INFORMATION
  Report Type: Report from Study
  Country: AE (occurrence: AE)
  Receive Date: 20241115
  Receipt Date: 20241115
  Transmission Date: 20250114
  Serious: Yes (Other)
  Sender: NOVARTIS
  Company Number: AE-002147023-NVSC2024AE062861

PATIENT
  Age: 71 Year
  Sex: Male

DRUGS (7)
  1. AFINITOR [Suspect]
     Active Substance: EVEROLIMUS
     Indication: Neuroendocrine tumour
     Dosage: 10 MG, QD
     Route: 048
     Dates: start: 20231021, end: 20240207
  2. AFINITOR [Suspect]
     Active Substance: EVEROLIMUS
     Indication: Hepatic neuroendocrine tumour
     Dosage: 10 MG, EVERY OTHER DAY
     Route: 048
  3. SANDOSTATIN [Concomitant]
     Active Substance: OCTREOTIDE ACETATE
     Indication: Product used for unknown indication
     Dosage: UNK, QMO
     Route: 065
  4. TEMODAL [Concomitant]
     Active Substance: TEMOZOLOMIDE
     Indication: Product used for unknown indication
     Dosage: 320 MG, 5QD (AT BREAKFAST)
     Route: 048
     Dates: start: 20240207
  5. XELODA [Concomitant]
     Active Substance: CAPECITABINE
     Indication: Product used for unknown indication
     Dosage: 1000 MG, Q12H (FOR 14 DAYS)
     Route: 048
     Dates: start: 20240207
  6. ZOFRAN [Concomitant]
     Active Substance: ONDANSETRON HYDROCHLORIDE
     Indication: Product used for unknown indication
     Dosage: 8 MG, BID (FOR 5 DAYS)
     Route: 048
     Dates: start: 20240207
  7. LANREOTIDE ACETATE [Concomitant]
     Active Substance: LANREOTIDE ACETATE
     Indication: Product used for unknown indication
     Dosage: UNK, QMO
     Route: 065

REACTIONS (6)
  - Hepatic lesion [Unknown]
  - Hepatic neuroendocrine tumour [Unknown]
  - Neoplasm progression [Unknown]
  - Oral pain [Unknown]
  - Decreased appetite [Unknown]
  - Drug intolerance [Unknown]

NARRATIVE: CASE EVENT DATE: 20231021
